FAERS Safety Report 8535906-5 (Version None)
Quarter: 2012Q3

REPORT INFORMATION
  Report Type: 
  Country: None (occurrence: None)
  Receive Date: 20120725
  Receipt Date: 20120719
  Transmission Date: 20120928
  Serious: Yes (Hospitalization, Other)
  Sender: FDA-Public Use
  Company Number: PHEH2012US004826

PATIENT
  Age: 61 Year
  Sex: Male
  Weight: 168 kg

DRUGS (18)
  1. GABAPENTIN [Concomitant]
     Dosage: 300 MG, TID
     Dates: start: 20110929, end: 20111128
  2. BENGAY ULTRA STRENGTH CRM [Concomitant]
     Indication: PAIN
  3. BENZTROPINE MESYLATE [Concomitant]
     Indication: EXTRAPYRAMIDAL DISORDER
     Dosage: 2 MG, BID
     Route: 048
     Dates: start: 20110908, end: 20111128
  4. HYDROCODONE [Concomitant]
     Indication: MUSCULOSKELETAL PAIN
     Dosage: 1 DF, PRN
     Dates: start: 20111117
  5. BENZTROPINE MESYLATE [Concomitant]
     Dosage: 2 MG, BID
     Dates: start: 20111117
  6. GABAPENTIN [Concomitant]
     Dosage: 600 MG, TID
     Dates: start: 20111117, end: 20111202
  7. FANAPT [Suspect]
     Indication: SCHIZOAFFECTIVE DISORDER
     Dosage: 12 MG, BID
     Route: 048
     Dates: start: 20110301
  8. GABAPENTIN [Concomitant]
     Dosage: 600 MG, TID
     Dates: start: 20110929, end: 20111128
  9. DEPAKOTE [Suspect]
     Indication: SCHIZOAFFECTIVE DISORDER
     Dosage: 1500 MG, BID
     Route: 048
  10. FAMOTIDINE [Concomitant]
     Dosage: 10 MG, UNK
     Route: 048
     Dates: start: 20111117
  11. GABAPENTIN [Concomitant]
     Dosage: 300 MG, TID
     Dates: start: 20111117, end: 20111202
  12. LEVOTHYROXINE SODIUM [Concomitant]
     Indication: HYPOTHYROIDISM
     Dosage: 50 UG, QD
     Route: 048
  13. DIVALPROEX SODIUM [Concomitant]
     Indication: SCHIZOAFFECTIVE DISORDER
     Dosage: 1500 MG, BID
     Route: 048
     Dates: start: 20110802, end: 20111128
  14. ILOPERIDONE [Concomitant]
     Dosage: 12 MG, BID
     Dates: start: 20111117, end: 20111205
  15. DIVALPROEX SODIUM [Concomitant]
     Dosage: 1500 MG, BID
     Route: 048
     Dates: start: 20111117, end: 20111202
  16. FAMOTIDINE [Concomitant]
     Indication: DYSPEPSIA
     Dosage: 10 MG, UNK
     Dates: start: 20110812, end: 20111128
  17. ILOPERIDONE [Concomitant]
     Dosage: 12 MG, BID
     Dates: start: 20110527, end: 20111128
  18. METFORMIN HYDROCHLORIDE [Concomitant]
     Indication: DIABETES MELLITUS
     Dosage: 500 MG, TID
     Route: 048

REACTIONS (17)
  - LYMPHOCYTE COUNT INCREASED [None]
  - HAEMOGLOBIN DECREASED [None]
  - WEIGHT DECREASED [None]
  - WHITE BLOOD CELL COUNT DECREASED [None]
  - OBSESSIVE-COMPULSIVE DISORDER [None]
  - HYPOTENSION [None]
  - COGNITIVE DISORDER [None]
  - THROMBOCYTOPENIA [None]
  - MODERATE MENTAL RETARDATION [None]
  - OXYGEN SATURATION DECREASED [None]
  - LETHARGY [None]
  - DEAFNESS NEUROSENSORY [None]
  - MONOCYTE COUNT INCREASED [None]
  - RED BLOOD CELL COUNT DECREASED [None]
  - MEAN CELL HAEMOGLOBIN CONCENTRATION INCREASED [None]
  - HAEMATOCRIT DECREASED [None]
  - NUTRITIONAL CONDITION ABNORMAL [None]
